FAERS Safety Report 6169367-0 (Version None)
Quarter: 2009Q2

REPORT INFORMATION
  Report Type: 
  Country: None (occurrence: None)
  Receive Date: 20090424
  Receipt Date: 20090227
  Transmission Date: 20091009
  Serious: No
  Sender: FDA-Public Use
  Company Number: PYLE-2009-005

PATIENT
  Age: 81 Year
  Sex: Female

DRUGS (2)
  1. PYLERA [Suspect]
     Indication: HELICOBACTER INFECTION
     Dosage: 3 CAPS; QID; PO
     Route: 048
     Dates: start: 20090220
  2. OMEPRAZOLE [Concomitant]

REACTIONS (10)
  - ABDOMINAL DISCOMFORT [None]
  - ABNORMAL FAECES [None]
  - ANXIETY [None]
  - CONSTIPATION [None]
  - DECREASED APPETITE [None]
  - DYSPNOEA [None]
  - ERUCTATION [None]
  - FAECES DISCOLOURED [None]
  - FLATULENCE [None]
  - TONGUE DISCOLOURATION [None]
